FAERS Safety Report 21693633 (Version 1)
Quarter: 2022Q4

REPORT INFORMATION
  Report Type: Spontaneous
  Country: IQ (occurrence: None)
  Receive Date: 20221206
  Receipt Date: 20221206
  Transmission Date: 20230113
  Serious: Yes (unspecified)
  Sender: FDA-Public Use
  Company Number: None

PATIENT
  Age: 22 Year
  Sex: Male
  Weight: 68 kg

DRUGS (2)
  1. KIRKLAND SIGNATURE MINOXIDIL [Suspect]
     Active Substance: MINOXIDIL
     Indication: Alopecia
     Dosage: OTHER QUANTITY : 0.15 OUNCE(S);?FREQUENCY : TWICE A DAY;?
     Route: 061
  2. Hair vitamins dr.bergs [Concomitant]

REACTIONS (4)
  - Penile size reduced [None]
  - Testicular disorder [None]
  - Insomnia [None]
  - Erectile dysfunction [None]

NARRATIVE: CASE EVENT DATE: 20221101
